FAERS Safety Report 5233818-6 (Version None)
Quarter: 2007Q1

REPORT INFORMATION
  Report Type: 
  Country: None (occurrence: None)
  Receive Date: 20061208
  Receipt Date: 20060217
  Transmission Date: 20070707
  Serious: Yes (Other)
  Sender: FDA-Public Use
  Company Number: 2006UW02733

PATIENT
  Age: 50 Year
  Sex: Female
  Weight: 56.699 kg

DRUGS (1)
  1. CRESTOR [Suspect]
     Indication: BLOOD CHOLESTEROL INCREASED
     Dosage: 10 MG PO
     Route: 048

REACTIONS (5)
  - BLOOD GLUCOSE INCREASED [None]
  - CHEST PAIN [None]
  - DIZZINESS [None]
  - GLYCOSYLATED HAEMOGLOBIN INCREASED [None]
  - MUSCLE SPASMS [None]
